FAERS Safety Report 22282134 (Version 4)
Quarter: 2025Q2

REPORT INFORMATION
  Report Type: Report from Study
  Country: CO (occurrence: CO)
  Receive Date: 20230504
  Receipt Date: 20250409
  Transmission Date: 20250716
  Serious: Yes (Other)
  Sender: NOVARTIS
  Company Number: CO-002147023-PHHY2018CO029846

PATIENT
  Age: 48 Year
  Sex: Female
  Weight: 69 kg

DRUGS (6)
  1. COSENTYX [Suspect]
     Active Substance: SECUKINUMAB
     Indication: Psoriasis
     Route: 058
     Dates: start: 20180117
  2. COSENTYX [Suspect]
     Active Substance: SECUKINUMAB
     Indication: Psoriatic arthropathy
     Route: 058
  3. COSENTYX [Suspect]
     Active Substance: SECUKINUMAB
     Route: 058
     Dates: start: 20200904
  4. COSENTYX [Suspect]
     Active Substance: SECUKINUMAB
     Route: 058
  5. COSENTYX [Suspect]
     Active Substance: SECUKINUMAB
     Route: 058
     Dates: start: 202211
  6. COSENTYX [Suspect]
     Active Substance: SECUKINUMAB
     Route: 058
     Dates: start: 20250328

REACTIONS (11)
  - Syncope [Unknown]
  - Malaise [Unknown]
  - Viral infection [Unknown]
  - Fatigue [Unknown]
  - Fall [Unknown]
  - Vertigo [Unknown]
  - Head injury [Unknown]
  - Gait inability [Unknown]
  - Feeling abnormal [Unknown]
  - Product availability issue [Unknown]
  - Amnesia [Unknown]

NARRATIVE: CASE EVENT DATE: 20180208
